FAERS Safety Report 8486817-5 (Version None)
Quarter: 2012Q3

REPORT INFORMATION
  Report Type: 
  Country: None (occurrence: None)
  Receive Date: 20120704
  Receipt Date: 20120625
  Transmission Date: 20120928
  Serious: Yes (Hospitalization)
  Sender: FDA-Public Use
  Company Number: AU-BRISTOL-MYERS SQUIBB COMPANY-16714313

PATIENT
  Age: 46 Year
  Sex: Female
  Weight: 104 kg

DRUGS (16)
  1. ORENCIA [Suspect]
     Indication: RHEUMATOID ARTHRITIS
     Route: 042
     Dates: start: 20120116
  2. VALTREX [Concomitant]
  3. CALCIUM CARBONATE [Concomitant]
  4. ASCORBIC ACID [Concomitant]
  5. NITROGLYCERIN [Concomitant]
     Route: 062
  6. ZOLOFT [Concomitant]
  7. MONODUR [Concomitant]
  8. NEOMYCIN SULFATE TAB [Concomitant]
     Dosage: INJ
  9. OSTEVIT-D [Concomitant]
     Dosage: 1 DF: 2 CAPSULES
  10. ZANTAC [Concomitant]
  11. TRAMADOL HCL [Concomitant]
  12. MELOXICAM [Concomitant]
  13. PLAQUENIL [Concomitant]
  14. FEXOFENADINE HCL [Concomitant]
  15. NEXIUM [Concomitant]
  16. FLUTICASONE PROPIONATE/SALMETEROL [Concomitant]

REACTIONS (2)
  - WOUND INFECTION [None]
  - TENDON RUPTURE [None]
